FAERS Safety Report 5029310-4 (Version None)
Quarter: 2006Q2

REPORT INFORMATION
  Report Type: 
  Country: None (occurrence: None)
  Receive Date: 20060614
  Receipt Date: 20060525
  Transmission Date: 20061013
  Serious: No
  Sender: FDA-Public Use
  Company Number: US200603002233

PATIENT
  Age: 45 Year
  Sex: Female

DRUGS (2)
  1. ZYPREXA [Suspect]
     Indication: DEPRESSION
     Dates: start: 20040801, end: 20041001
  2. SEROQUEL [Concomitant]

REACTIONS (2)
  - BLOOD DISORDER [None]
  - DIABETES MELLITUS [None]
